FAERS Safety Report 9013860 (Version 1)
Quarter: 2013Q1

REPORT INFORMATION
  Report Type: Spontaneous
  Country: US (occurrence: None)
  Receive Date: 20130109
  Receipt Date: 20130109
  Transmission Date: 20140127
  Serious: No
  Sender: FDA-Public Use
  Company Number: None

PATIENT
  Age: 40 Year
  Sex: Male

DRUGS (2)
  1. ATAZANAVIR (REYATAZ) [Suspect]
     Dates: start: 20100917, end: 20101119
  2. RITONAVIR (NORVIR) [Suspect]
     Dates: start: 20100917, end: 20101119

REACTIONS (1)
  - Drug-induced liver injury [None]
